FAERS Safety Report 5246214-2 (Version None)
Quarter: 2007Q1

REPORT INFORMATION
  Report Type: 
  Country: None (occurrence: None)
  Receive Date: 20070221
  Receipt Date: 20070205
  Transmission Date: 20070707
  Serious: Yes (Other)
  Sender: FDA-Public Use
  Company Number: 234226

PATIENT
  Age: 74 Year
  Sex: Female

DRUGS (2)
  1. RANIBIZUMAB OR SHAM INJECTION (CODE NOT BROKEN (PWDR + SOLVENT, INJECT [Suspect]
     Indication: MACULAR DEGENERATION
     Dosage: INTRAVITREAL
     Dates: start: 20061023, end: 20061120
  2. LIDOCAINE [Suspect]
     Indication: DRUG USE FOR UNKNOWN INDICATION
     Dosage: 0.1 ML

REACTIONS (1)
  - WRONG DRUG ADMINISTERED [None]
